FAERS Safety Report 18310834 (Version 3)
Quarter: 2020Q4

REPORT INFORMATION
  Report Type: Spontaneous
  Country: SI (occurrence: SI)
  Receive Date: 20200925
  Receipt Date: 20201117
  Transmission Date: 20210113
  Serious: Yes (Other)
  Sender: FDA-Public Use
  Company Number: SI-ROCHE-2683611

PATIENT
  Age: 64 Year
  Sex: Male

DRUGS (9)
  1. TECENTRIQ [Suspect]
     Active Substance: ATEZOLIZUMAB
     Route: 042
  2. CARBOPLATIN. [Suspect]
     Active Substance: CARBOPLATIN
     Route: 042
     Dates: start: 20200715
  3. PLIVIT D3 [Concomitant]
     Active Substance: CHOLECALCIFEROL
     Route: 048
  4. TECENTRIQ [Suspect]
     Active Substance: ATEZOLIZUMAB
     Indication: SMALL CELL LUNG CANCER METASTATIC
     Dosage: DAY 1, 4 CYCLES
     Route: 042
     Dates: start: 20200511
  5. TECENTRIQ [Suspect]
     Active Substance: ATEZOLIZUMAB
     Dosage: DAY 1, 4 CYCLES
     Route: 042
     Dates: start: 20200914
  6. ETOPOSIDE. [Suspect]
     Active Substance: ETOPOSIDE
     Indication: SMALL CELL LUNG CANCER METASTATIC
     Dosage: 100MG/M2, DAN, 4 CYCLES 1ST, 2ND AND 3RD DAY OF 21 DAYS CYCLE
     Route: 042
     Dates: start: 20200511
  7. CARBOPLATIN. [Suspect]
     Active Substance: CARBOPLATIN
     Indication: SMALL CELL LUNG CANCER METASTATIC
     Route: 042
     Dates: start: 20200511
  8. ETOPOSIDE. [Suspect]
     Active Substance: ETOPOSIDE
     Dosage: 100MG/M2, DAN, 4 CYCLES 1ST, 2ND AND 3RD DAY OF 21 DAYS CYCLE
     Route: 042
     Dates: start: 20200715
  9. DENOSUMAB [Concomitant]
     Active Substance: DENOSUMAB

REACTIONS (5)
  - Asthenia [Recovered/Resolved]
  - Diarrhoea [Recovered/Resolved]
  - Anaemia [Recovered/Resolved]
  - Fatigue [Recovered/Resolved]
  - Syncope [Recovered/Resolved]

NARRATIVE: CASE EVENT DATE: 20200601
